FAERS Safety Report 16659918 (Version 2)
Quarter: 2020Q4

REPORT INFORMATION
  Report Type: Spontaneous
  Country: HU (occurrence: HU)
  Receive Date: 20190802
  Receipt Date: 20201103
  Transmission Date: 20210113
  Serious: Yes (Death, Life-Threatening, Hospitalization, Other)
  Sender: FDA-Public Use
  Company Number: HU-TEVA-2019-HU-1086318

PATIENT
  Age: 78 Year
  Sex: Male

DRUGS (26)
  1. AMOXICILLIN TRIHYDRATE W/CLAVULANIC ACID [Suspect]
     Active Substance: AMOXICILLIN\CLAVULANIC ACID
     Indication: PROPHYLAXIS
  2. PIPERACILLIN AND TAZOBACTAM [Suspect]
     Active Substance: PIPERACILLIN SODIUM\TAZOBACTAM SODIUM
     Indication: ANTIBIOTIC THERAPY
     Dosage: 4.5 G, QID
     Route: 042
  3. GENTAMYCIN /00047101/ [Suspect]
     Active Substance: GENTAMICIN
     Indication: ENTEROBACTER INFECTION
  4. CEFTAZIDIME. [Suspect]
     Active Substance: CEFTAZIDIME
     Indication: ENTEROBACTER INFECTION
     Dosage: 2 G, TID
     Route: 042
  5. VANCOMYCIN [Suspect]
     Active Substance: VANCOMYCIN
     Indication: CLOSTRIDIUM DIFFICILE INFECTION
     Dosage: 125 MG, QID
     Route: 048
  6. CEFUROXIM                          /00454602/ [Suspect]
     Active Substance: CEFUROXIME
     Indication: ESCHERICHIA INFECTION
  7. GENTAMYCIN /00047101/ [Suspect]
     Active Substance: GENTAMICIN
     Indication: PSEUDOMONAS INFECTION
     Dosage: 160 MILLIGRAM DAILY;
     Route: 042
  8. SULFAMETHOXAZOLE AND TRIMETHOPRIM [Suspect]
     Active Substance: SULFAMETHOXAZOLE\TRIMETHOPRIM
     Indication: CITROBACTER INFECTION
     Dosage: 400/80 MG
     Route: 048
  9. BETADINE [Concomitant]
     Active Substance: POVIDONE-IODINE
  10. ASCORBIC ACID. [Concomitant]
     Active Substance: ASCORBIC ACID
  11. METRONIDAZOLE. [Suspect]
     Active Substance: METRONIDAZOLE
     Indication: PROPHYLAXIS
     Dosage: 100 ML, TID
     Route: 042
  12. CEFUROXIM                          /00454602/ [Suspect]
     Active Substance: CEFUROXIME
     Indication: INFLAMMATION
     Dosage: 1.5 G, TID
     Route: 042
  13. CEFTAZIDIME. [Suspect]
     Active Substance: CEFTAZIDIME
     Indication: ENTEROBACTER INFECTION
  14. CILASTATIN SODIUM W/IMIPENEM [Suspect]
     Active Substance: CILASTATIN SODIUM\IMIPENEM
     Indication: RENAL IMPAIRMENT
     Dosage: 500 MG, BID
     Route: 042
  15. MEROPENEM. [Suspect]
     Active Substance: MEROPENEM
     Indication: PNEUMONIA KLEBSIELLA
     Dosage: 1 G, BID
     Route: 042
  16. FIDAXOMICIN [Suspect]
     Active Substance: FIDAXOMICIN
     Indication: CLOSTRIDIUM DIFFICILE INFECTION
     Dosage: 200 MG, BID
  17. CEFTAZIDIME. [Suspect]
     Active Substance: CEFTAZIDIME
     Indication: PSEUDOMONAS INFECTION
  18. METRONIDAZOLE. [Suspect]
     Active Substance: METRONIDAZOLE
     Indication: INFLAMMATION
  19. GENTAMYCIN /00047101/ [Suspect]
     Active Substance: GENTAMICIN
     Indication: ENTEROBACTER INFECTION
  20. FOSFOMYCIN [Suspect]
     Active Substance: FOSFOMYCIN
     Indication: PNEUMONIA KLEBSIELLA
     Dosage: 3 GRAM DAILY;
     Route: 048
  21. METHENAMINE [Concomitant]
     Active Substance: METHENAMINE
  22. AMOXICILLIN TRIHYDRATE W/CLAVULANIC ACID [Suspect]
     Active Substance: AMOXICILLIN\CLAVULANIC ACID
     Indication: INFLAMMATION
     Dosage: 1.2 G, TID
     Route: 042
  23. CILASTATIN SODIUM W/IMIPENEM [Suspect]
     Active Substance: CILASTATIN SODIUM\IMIPENEM
     Indication: ENTEROCOCCAL INFECTION
     Dosage: 500 MG, QID
     Route: 042
  24. METRONIDAZOLE. [Suspect]
     Active Substance: METRONIDAZOLE
     Indication: CLOSTRIDIUM DIFFICILE INFECTION
  25. AVIBACTAM SODIUM W/CEFTAZIDIME PENTAHYDRATE [Suspect]
     Active Substance: AVIBACTAM SODIUM\CEFTAZIDIME
     Indication: PNEUMONIA KLEBSIELLA
     Dosage: 2.5 G, TID
     Route: 042
     Dates: start: 20180707, end: 20180713
  26. AVIBACTAM SODIUM W/CEFTAZIDIME PENTAHYDRATE [Suspect]
     Active Substance: AVIBACTAM SODIUM\CEFTAZIDIME
     Indication: SEPSIS

REACTIONS (17)
  - Malaise [Unknown]
  - Dyspnoea [Unknown]
  - Clostridium difficile infection [Not Recovered/Not Resolved]
  - Diarrhoea [Unknown]
  - Product use in unapproved indication [Unknown]
  - Pathogen resistance [Fatal]
  - Sepsis [Fatal]
  - Chest pain [Unknown]
  - Hypoxia [Unknown]
  - Anaemia [Unknown]
  - Gastroenteritis [Unknown]
  - Drug resistance [Unknown]
  - Pyrexia [Unknown]
  - Respiratory failure [Unknown]
  - Septic shock [Fatal]
  - Chills [Unknown]
  - Melaena [Unknown]

NARRATIVE: CASE EVENT DATE: 20180718
